FAERS Safety Report 4465928-5 (Version None)
Quarter: 2004Q3

REPORT INFORMATION
  Report Type: 
  Country: None (occurrence: None)
  Receive Date: 20040930
  Receipt Date: 20040930
  Transmission Date: 20050211
  Serious: Yes (Hospitalization)
  Sender: FDA-Public Use
  Company Number: None

PATIENT
  Sex: Male

DRUGS (2)
  1. ALTOCOR  40MG ANDRX [Suspect]
     Indication: HYPERCHOLESTEROLAEMIA
     Dosage: 40 MG DAILY ORAL
     Route: 048
     Dates: start: 20040101, end: 20040828
  2. UNIRETIC [Suspect]
     Indication: HYPERTENSION
     Dosage: 15 /25 M BID ORAL
     Route: 048
     Dates: start: 20040101, end: 20040828

REACTIONS (2)
  - CHEST PAIN [None]
  - RHABDOMYOLYSIS [None]
